FAERS Safety Report 4721607-8 (Version None)
Quarter: 2005Q3

REPORT INFORMATION
  Report Type: 
  Country: None (occurrence: None)
  Receive Date: 20050721
  Receipt Date: 20041227
  Transmission Date: 20060218
  Serious: No
  Sender: FDA-Public Use
  Company Number: US-BRISTOL-MYERS SQUIBB COMPANY-12807467

PATIENT
  Age: 85 Year
  Sex: Male
  Weight: 84 kg

DRUGS (4)
  1. COUMADIN [Suspect]
     Indication: MYOCARDIAL INFARCTION
     Dosage: 5 MG DAILY, EXCEPT 2.5 MG ON MONDAY AND THURSDAYS.
     Route: 048
  2. IMDUR [Concomitant]
  3. LASIX [Concomitant]
  4. PRINIVIL [Concomitant]

REACTIONS (2)
  - DIARRHOEA [None]
  - PERIPHERAL COLDNESS [None]
